FAERS Safety Report 15387848 (Version 1)
Quarter: 2018Q3

REPORT INFORMATION
  Report Type: Spontaneous
  Country: US (occurrence: US)
  Receive Date: 20180914
  Receipt Date: 20180914
  Transmission Date: 20181010
  Serious: Yes (Hospitalization)
  Sender: FDA-Public Use
  Company Number: US-THE PROACTIV LLC-2054960

PATIENT
  Age: 14 Year
  Sex: Female

DRUGS (4)
  1. X OUT CLEANSING BODY BAR [Suspect]
     Active Substance: SALICYLIC ACID
     Route: 061
     Dates: start: 201802, end: 201808
  2. X OUT SPOT CORRECTOR [Suspect]
     Active Substance: SULFUR
     Route: 061
     Dates: start: 201802, end: 201808
  3. X?OUT WASH?IN TREATMENT [Suspect]
     Active Substance: BENZOYL PEROXIDE
     Indication: PRODUCT USED FOR UNKNOWN INDICATION
     Route: 061
     Dates: start: 201802, end: 201808
  4. X OUT DAILY BODY SCRUB [Suspect]
     Active Substance: SALICYLIC ACID
     Route: 061
     Dates: start: 201802, end: 201802

REACTIONS (9)
  - Swelling face [Recovered/Resolved]
  - Rash macular [Recovered/Resolved]
  - Pruritus [Recovered/Resolved]
  - Skin ulcer [Recovered/Resolved]
  - Erythema [Recovered/Resolved]
  - Hypersensitivity [Recovered/Resolved]
  - Scar [Recovered/Resolved]
  - Rash erythematous [Recovered/Resolved]
  - Skin infection [Recovered/Resolved]

NARRATIVE: CASE EVENT DATE: 201802
